FAERS Safety Report 5287234-1 (Version None)
Quarter: 2007Q2

REPORT INFORMATION
  Report Type: 
  Country: None (occurrence: None)
  Receive Date: 20070404
  Receipt Date: 20070326
  Transmission Date: 20071010
  Serious: Yes (Life-Threatening, Hospitalization)
  Sender: FDA-Public Use
  Company Number: ES-PFIZER INC-2007023998

PATIENT
  Age: 67 Year
  Sex: Male

DRUGS (6)
  1. ALDACTONE [Suspect]
     Indication: HYPERTENSION
     Route: 048
  2. SINTROM [Concomitant]
     Indication: HYPERTENSION
     Route: 048
  3. DIGOXIN [Concomitant]
     Route: 048
  4. CARDURA [Concomitant]
     Indication: HYPERTENSION
     Route: 048
  5. COROPRES [Concomitant]
     Indication: HYPERTENSION
     Route: 048
  6. METFORMIN HCL [Concomitant]
     Indication: DIABETES MELLITUS
     Route: 048

REACTIONS (2)
  - CARDIAC ARREST [None]
  - HYPERKALAEMIA [None]
